FAERS Safety Report 5140111-9 (Version None)
Quarter: 2006Q4

REPORT INFORMATION
  Report Type: 
  Country: None (occurrence: None)
  Receive Date: 20061025
  Receipt Date: 20060718
  Transmission Date: 20070319
  Serious: Yes (Death, Life-Threatening, Hospitalization, Disabling)
  Sender: FDA-Public Use
  Company Number: RB-3464-2006

PATIENT
  Age: 19 Year
  Sex: Male
  Weight: 63.5036 kg

DRUGS (3)
  1. SUBOXONE [Suspect]
     Indication: DRUG DEPENDENCE
     Dosage: SEE IMAGE
     Route: 060
     Dates: start: 20060615, end: 20060616
  2. SUBOXONE [Suspect]
     Indication: DRUG DEPENDENCE
     Dosage: SEE IMAGE
     Route: 060
     Dates: start: 20060617, end: 20060617
  3. SUBOXONE [Suspect]
     Indication: DRUG DEPENDENCE
     Dosage: SEE IMAGE
     Route: 060
     Dates: start: 20060618, end: 20060618

REACTIONS (10)
  - APALLIC SYNDROME [None]
  - BRAIN OEDEMA [None]
  - DEHYDRATION [None]
  - DRUG WITHDRAWAL SYNDROME [None]
  - ENCEPHALOPATHY [None]
  - HEART RATE INCREASED [None]
  - HYPERHIDROSIS [None]
  - HYPERTENSIVE CRISIS [None]
  - NO THERAPEUTIC RESPONSE [None]
  - TREATMENT NONCOMPLIANCE [None]
